FAERS Safety Report 10209196 (Version 2)
Quarter: 2014Q3

REPORT INFORMATION
  Report Type: Spontaneous
  Country: CL (occurrence: CL)
  Receive Date: 20140530
  Receipt Date: 20140725
  Transmission Date: 20150326
  Serious: Yes (Other)
  Sender: FDA-Public Use
  Company Number: CL-BIOMARINAP-CL-2014-103371

PATIENT
  Sex: Female

DRUGS (1)
  1. NAGLAZYME [Suspect]
     Active Substance: GALSULFASE
     Indication: MUCOPOLYSACCHARIDOSIS VI
     Dosage: 15 MG, QW
     Route: 041
     Dates: start: 200711

REACTIONS (1)
  - Hydrocephalus [Recovered/Resolved]
